FAERS Safety Report 12245981 (Version 1)
Quarter: 2016Q2

REPORT INFORMATION
  Report Type: Other
  Country: US (occurrence: US)
  Receive Date: 20160407
  Receipt Date: 20160407
  Transmission Date: 20160815
  Serious: Yes (Hospitalization)
  Sender: FDA-Public Use
  Company Number: US-FRI-1000083536

PATIENT
  Age: 15 Year
  Sex: Male

DRUGS (1)
  1. VILAZODONE [Suspect]
     Active Substance: VILAZODONE
     Dosage: 780 MG

REACTIONS (3)
  - Electrocardiogram abnormal [Recovered/Resolved]
  - Serotonin syndrome [Recovered/Resolved]
  - Suicide attempt [Recovered/Resolved]
